FAERS Safety Report 6148921-6 (Version None)
Quarter: 2009Q2

REPORT INFORMATION
  Report Type: 
  Country: None (occurrence: None)
  Receive Date: 20090407
  Receipt Date: 20090327
  Transmission Date: 20091009
  Serious: Yes (Other)
  Sender: FDA-Public Use
  Company Number: 034966

PATIENT
  Age: 21 Year
  Sex: Female
  Weight: 56.6996 kg

DRUGS (3)
  1. CLARAVIS [Suspect]
     Dosage: 40 MG DAILY ALTERNATING WITH 80 MG EVERY THIRD DAY
     Dates: start: 20080814, end: 20080913
  2. ISOTRETINOIN [Suspect]
     Dosage: 40 MG (40 MG, 1 IN 1 D) ORAL
     Route: 048
     Dates: start: 20080623, end: 20080723
  3. ORAL CONTRACEPTIVE NOS [Concomitant]

REACTIONS (5)
  - ABORTION INDUCED [None]
  - DRUG EXPOSURE DURING PREGNANCY [None]
  - PREGNANCY ON ORAL CONTRACEPTIVE [None]
  - PREGNANCY WITH CONTRACEPTIVE DEVICE [None]
  - UNINTENDED PREGNANCY [None]
